FAERS Safety Report 5331384-8 (Version None)
Quarter: 2007Q2

REPORT INFORMATION
  Report Type: 
  Country: None (occurrence: None)
  Receive Date: 20070522
  Receipt Date: 20070510
  Transmission Date: 20071010
  Serious: Yes (Hospitalization)
  Sender: FDA-Public Use
  Company Number: AU-SANOFI-SYNTHELABO-A01200704952

PATIENT
  Age: 50 Year
  Sex: Female

DRUGS (8)
  1. KAPANOL [Concomitant]
     Indication: DRUG USE FOR UNKNOWN INDICATION
     Dosage: UNK
     Route: 065
  2. DUROLAX [Concomitant]
     Indication: DRUG USE FOR UNKNOWN INDICATION
     Dosage: UNK
     Route: 065
  3. NORFLEX [Concomitant]
     Indication: DRUG USE FOR UNKNOWN INDICATION
     Dosage: UNK
     Route: 065
  4. NEXIUM [Concomitant]
     Indication: DRUG USE FOR UNKNOWN INDICATION
     Dosage: UNK
     Route: 065
  5. COLOXYL [Concomitant]
     Indication: DRUG USE FOR UNKNOWN INDICATION
     Dosage: UNK
     Route: 065
  6. STILNOX [Suspect]
     Indication: DRUG USE FOR UNKNOWN INDICATION
     Route: 048
     Dates: end: 20070322
  7. EFFEXOR XR [Suspect]
     Indication: DRUG USE FOR UNKNOWN INDICATION
     Route: 065
  8. VALIUM [Suspect]
     Indication: ANXIETY DISORDER
     Route: 048

REACTIONS (6)
  - ABNORMAL SLEEP-RELATED EVENT [None]
  - AMNESIA [None]
  - BINGE EATING [None]
  - FALL [None]
  - HEAD INJURY [None]
  - SLEEP WALKING [None]
